FAERS Safety Report 8388100-5 (Version None)
Quarter: 2012Q2

REPORT INFORMATION
  Report Type: 
  Country: None (occurrence: None)
  Receive Date: 20120525
  Receipt Date: 20120518
  Transmission Date: 20120825
  Serious: Yes (Hospitalization, Disabling, Other)
  Sender: FDA-Public Use
  Company Number: JP-JNJFOC-20111100755

PATIENT
  Sex: Male
  Weight: 80 kg

DRUGS (8)
  1. VITAMIN B12 [Concomitant]
     Indication: RADICULITIS
     Dosage: 1 PER 1 DAY
     Route: 048
     Dates: start: 20090507
  2. TRAMADOL HYDROCHLORIDE AND ACETAMINOPHEN [Suspect]
     Dosage: 0.5 DOSES 2 PER 1 DAY
     Route: 048
     Dates: start: 20111107, end: 20111128
  3. DEPAS [Concomitant]
     Indication: SPINAL OSTEOARTHRITIS
     Dosage: 0.5 MG 1 PER 1 DAY
     Route: 048
     Dates: start: 20090507
  4. TRAMADOL HYDROCHLORIDE AND ACETAMINOPHEN [Suspect]
     Indication: BACK PAIN
     Dosage: TWICE DAILY
     Route: 048
     Dates: start: 20110926, end: 20111106
  5. MUCOSTA [Concomitant]
     Indication: PROPHYLAXIS
     Route: 048
     Dates: start: 20110428
  6. LORCAM [Concomitant]
     Indication: PAIN
     Dosage: 1 PER 1 DAY
     Route: 048
     Dates: start: 20110428
  7. PROCYLIN [Concomitant]
     Indication: PERIPHERAL ARTERIAL OCCLUSIVE DISEASE
     Dosage: 1 PER 1 DAY
     Route: 048
     Dates: end: 20111020
  8. MOHRUS TAPE L [Concomitant]
     Indication: SPINAL OSTEOARTHRITIS
     Dosage: 1 PER 1 DAY
     Route: 062
     Dates: start: 20090507

REACTIONS (7)
  - FEELING ABNORMAL [None]
  - COMPRESSION FRACTURE [None]
  - NASOPHARYNGITIS [None]
  - CONSTIPATION [None]
  - DIZZINESS [None]
  - SOMNOLENCE [None]
  - FALL [None]
